FAERS Safety Report 5694202-4 (Version None)
Quarter: 2008Q2

REPORT INFORMATION
  Report Type: 
  Country: None (occurrence: None)
  Receive Date: 20080403
  Receipt Date: 20080326
  Transmission Date: 20081010
  Serious: Yes (Other)
  Sender: FDA-Public Use
  Company Number: PHHY2008AU03795

PATIENT
  Sex: Female

DRUGS (1)
  1. ESTRADOT [Suspect]
     Indication: HORMONE REPLACEMENT THERAPY
     Dosage: TWICE A WEEK
     Route: 062

REACTIONS (2)
  - DEPRESSION [None]
  - MALAISE [None]
